FAERS Safety Report 8731512 (Version 3)
Quarter: 2012Q4

REPORT INFORMATION
  Report Type: 
  Country: US (occurrence: US)
  Receive Date: 20120820
  Receipt Date: 20120919
  Transmission Date: 20130627
  Serious: No
  Sender: FDA-Public Use
  Company Number: PHEH2012US015886

PATIENT
  Age: 70 Year
  Sex: Female

DRUGS (6)
  1. VIVELLE DOT [Suspect]
     Indication: MENOPAUSAL SYMPTOMS
     Dosage: 0.025 mg, QW2
     Route: 062
     Dates: start: 1999, end: 20120829
  2. PROGESTERONE [Concomitant]
     Indication: MENOPAUSE
     Dosage: 100 ug, UNK
     Route: 048
  3. SYNTHROID [Concomitant]
     Indication: THYROID HORMONE REPLACEMENT THERAPY
     Dosage: 1.25 mg, QD
     Route: 048
  4. PROMETRIUM [Concomitant]
  5. CELETIL [Concomitant]
  6. KLONOPIN [Concomitant]

REACTIONS (2)
  - Arthralgia [Unknown]
  - Pain in extremity [Not Recovered/Not Resolved]
